FAERS Safety Report 5505559-9 (Version None)
Quarter: 2007Q4

REPORT INFORMATION
  Report Type: 
  Country: None (occurrence: None)
  Receive Date: 20071102
  Receipt Date: 20071026
  Transmission Date: 20080405
  Serious: Yes (Hospitalization, Other)
  Sender: FDA-Public Use
  Company Number: US-ASTRAZENECA-2007UW18711

PATIENT
  Age: 17189 Day
  Sex: Female
  Weight: 101.4 kg

DRUGS (30)
  1. SEROQUEL [Suspect]
     Indication: ILL-DEFINED DISORDER
     Dosage: 25MG TO 100 MG
     Route: 048
     Dates: start: 20020917
  2. SEROQUEL [Suspect]
     Route: 048
  3. SEROQUEL [Suspect]
     Route: 048
  4. ZOLOFT [Concomitant]
  5. DEPAKOTE [Concomitant]
  6. DEPAKOTE [Concomitant]
  7. TRAZODONE HCL [Concomitant]
  8. ZYPREXA [Concomitant]
     Indication: SCHIZOPHRENIA
  9. ZYPREXA [Concomitant]
  10. ARTANE [Concomitant]
     Dates: start: 20050811
  11. ASPIRIN [Concomitant]
  12. LASIX [Concomitant]
  13. PANTOPRAZOLE SODIUM [Concomitant]
  14. DSS [Concomitant]
  15. LISINOPRIL [Concomitant]
  16. INDERAL [Concomitant]
  17. GLUCOPHAGE [Concomitant]
  18. ACTOS [Concomitant]
  19. PENTASA [Concomitant]
  20. GLYBURIDE [Concomitant]
  21. DITROPAN XL [Concomitant]
  22. ATENOLOL [Concomitant]
  23. SALSALATE [Concomitant]
  24. LIPITOR [Concomitant]
  25. TRAMADOL HCL [Concomitant]
     Dosage: 1 - 2 TAB Q6 HOURS
  26. ALBUTEROL [Concomitant]
  27. COUMADIN [Concomitant]
  28. MACROBID [Concomitant]
  29. CLOZARIL [Concomitant]
  30. HALDOL [Concomitant]

REACTIONS (4)
  - CEREBROVASCULAR ACCIDENT [None]
  - MUSCULAR WEAKNESS [None]
  - NEOPLASM MALIGNANT [None]
  - TREMOR [None]
